FAERS Safety Report 5836601-3 (Version None)
Quarter: 2008Q3

REPORT INFORMATION
  Report Type: 
  Country: None (occurrence: None)
  Receive Date: 20080807
  Receipt Date: 20080724
  Transmission Date: 20090109
  Serious: Yes (Hospitalization)
  Sender: FDA-Public Use
  Company Number: GB-BAYER-RCH-347780

PATIENT
  Age: 11 Year
  Sex: Male
  Weight: 30 kg

DRUGS (3)
  1. ASPIRIN [Suspect]
     Indication: RHEUMATIC FEVER
     Route: 065
  2. ASPIRIN [Suspect]
     Route: 065
  3. ASPIRIN [Suspect]
     Route: 065

REACTIONS (1)
  - RENAL PAPILLARY NECROSIS [None]
